FAERS Safety Report 16621513 (Version 3)
Quarter: 2019Q3

REPORT INFORMATION
  Report Type: Report from Study
  Country: AU (occurrence: AU)
  Receive Date: 20190723
  Receipt Date: 20190908
  Transmission Date: 20191004
  Serious: Yes (Hospitalization)
  Sender: FDA-Public Use
  Company Number: AU-REGENERON PHARMACEUTICALS, INC.-2019-43043

PATIENT

DRUGS (10)
  1. TAMSULOSIN [Concomitant]
     Active Substance: TAMSULOSIN
     Indication: BENIGN PROSTATIC HYPERPLASIA
     Dosage: 400 ?G, QD
     Route: 048
     Dates: start: 201808
  2. CEMIPLIMAB [Suspect]
     Active Substance: CEMIPLIMAB
     Indication: SQUAMOUS CELL CARCINOMA
     Dosage: 600 MG, Q4W
     Route: 042
     Dates: start: 20181221
  3. CODEINE [Concomitant]
     Active Substance: CODEINE
     Indication: PAIN IN EXTREMITY
     Dosage: 30 MG, AS NECESSARY
     Route: 048
     Dates: start: 20190520
  4. DUTASTERIDE. [Concomitant]
     Active Substance: DUTASTERIDE
     Indication: BENIGN PROSTATIC HYPERPLASIA
     Dosage: 500 ?G, QD
     Route: 048
     Dates: start: 201808
  5. NALOXONE [Concomitant]
     Active Substance: NALOXONE
     Indication: PAIN IN EXTREMITY
     Dosage: 2.5 MG, BID
     Route: 048
     Dates: start: 20190603
  6. ATENOLOL. [Concomitant]
     Active Substance: ATENOLOL
     Indication: HYPERTENSION
     Dosage: 50 MG, QD
     Route: 048
     Dates: start: 2013
  7. OXYCODONE [Concomitant]
     Active Substance: OXYCODONE
     Indication: PAIN IN EXTREMITY
     Dosage: 5 MG, AS NECESSARY
     Route: 048
     Dates: start: 20190520
  8. PARACETAMOL [Concomitant]
     Active Substance: ACETAMINOPHEN
     Indication: PAIN IN EXTREMITY
     Dosage: 500 MG, AS NECESSARY
     Route: 048
     Dates: start: 20190520
  9. OXYCODONE [Concomitant]
     Active Substance: OXYCODONE
     Dosage: 5 MG, BID (SLOW RELEASE)
     Route: 048
     Dates: start: 20190603
  10. DEEP HEATING RUB [Concomitant]
     Indication: PAIN IN EXTREMITY
     Dosage: 1 APPLICATION, AS NECESSARY
     Route: 061
     Dates: start: 20190701

REACTIONS (1)
  - Anaemia [Recovered/Resolved]

NARRATIVE: CASE EVENT DATE: 20190715
